FAERS Safety Report 15206679 (Version 1)
Quarter: 2018Q3

REPORT INFORMATION
  Report Type: Spontaneous
  Country: US (occurrence: US)
  Receive Date: 20180628
  Receipt Date: 20180628
  Transmission Date: 20181010
  Serious: Yes (Death)
  Sender: FDA-Public Use
  Company Number: None

PATIENT
  Age: 82 Year
  Sex: Male
  Weight: 117.5 kg

DRUGS (3)
  1. DOXYCYCLINE. [Concomitant]
     Active Substance: DOXYCYCLINE
  2. WARFARIN [Suspect]
     Active Substance: WARFARIN
  3. PREDNISONE. [Concomitant]
     Active Substance: PREDNISONE

REACTIONS (4)
  - Refusal of treatment by patient [None]
  - Respiratory disorder [None]
  - Intraventricular haemorrhage [None]
  - Fall [None]

NARRATIVE: CASE EVENT DATE: 20170212
